FAERS Safety Report 7285412-3 (Version None)
Quarter: 2011Q1

REPORT INFORMATION
  Report Type: 
  Country: None (occurrence: None)
  Receive Date: 20110201
  Receipt Date: 20110124
  Transmission Date: 20110831
  Serious: Yes (Hospitalization)
  Sender: FDA-Public Use
  Company Number: 2010SP042285

PATIENT
  Age: 19 Year
  Sex: Female
  Weight: 47.6277 kg

DRUGS (2)
  1. NUVARING [Suspect]
     Indication: MENSTRUAL DISORDER
  2. NUVARING [Suspect]
     Indication: CONTRACEPTION

REACTIONS (6)
  - PNEUMONIA [None]
  - HYPERCOAGULATION [None]
  - PULMONARY INFARCTION [None]
  - URINARY TRACT INFECTION [None]
  - PLEURAL EFFUSION [None]
  - PULMONARY EMBOLISM [None]
